FAERS Safety Report 5411674-0 (Version None)
Quarter: 2007Q3

REPORT INFORMATION
  Report Type: 
  Country: None (occurrence: None)
  Receive Date: 20070810
  Receipt Date: 20070730
  Transmission Date: 20080115
  Serious: Yes (Other)
  Sender: FDA-Public Use
  Company Number: GB-MERCK-0603GBR00109B1

PATIENT
  Sex: Female
  Weight: 1 kg

DRUGS (1)
  1. PROSCAR [Suspect]
     Route: 064

REACTIONS (3)
  - PREMATURE BABY [None]
  - SMALL FOR DATES BABY [None]
  - TRANSMISSION OF DRUG VIA SEMEN [None]
